FAERS Safety Report 17226997 (Version 3)
Quarter: 2021Q2

REPORT INFORMATION
  Report Type: Report from Study
  Country: BR (occurrence: BR)
  Receive Date: 20200103
  Receipt Date: 20210401
  Transmission Date: 20210716
  Serious: Yes (Hospitalization, Other)
  Sender: FDA-Public Use
  Company Number: BR-UCBSA-2019056619

PATIENT
  Age: 53 Year
  Sex: Female
  Weight: 65 kg

DRUGS (15)
  1. ZINNAT [CEFUROXIME SODIUM] [Concomitant]
     Active Substance: CEFUROXIME SODIUM
     Indication: PRODUCT USED FOR UNKNOWN INDICATION
  2. LEVOTHYROXINE SODIUM. [Concomitant]
     Active Substance: LEVOTHYROXINE SODIUM
     Indication: HYPOTHYROIDISM
     Dosage: UNK, ONCE DAILY (QD)
     Route: 048
  3. STILNOX [Concomitant]
     Active Substance: ZOLPIDEM TARTRATE
     Indication: SLEEP DISORDER
     Dosage: UNK, ONCE DAILY (QD)
     Route: 048
  4. LAMOTRIGINA [Concomitant]
     Active Substance: LAMOTRIGINE
     Indication: DEPRESSION
  5. VINATE AZ [Concomitant]
     Active Substance: .ALPHA.-TOCOPHEROL ACETATE\.ALPHA.-TOCOPHEROL ACETATE, DL-\.BETA.-CAROTENE\ASCORBIC ACID\BIOTIN\CALCIUM CARBONATE\CALCIUM PANTOTHENATE\CHOLECALCIFEROL\CUPRIC OXIDE\CYANOCOBALAMIN\FOLIC ACID\IRON\MAGNESIUM OXIDE\NIACINAMIDE\PYRIDOXINE HYDROCHLORIDE\RIBOFLAVIN\THIAMINE HYDROCHLORIDE\ZINC OXIDE
     Indication: INFECTION
     Dosage: UNK
     Route: 048
     Dates: start: 201912
  6. METHOTREXATE. [Concomitant]
     Active Substance: METHOTREXATE
     Indication: ANKYLOSING SPONDYLITIS
     Dosage: UNK, 2X/2 WEEKS
     Route: 048
  7. LAMOTRIGINA [Concomitant]
     Active Substance: LAMOTRIGINE
     Indication: FIBROMYALGIA
     Dosage: 100 MILLIGRAM, 2X/DAY (BID)
     Route: 048
     Dates: start: 2007
  8. TOPIRAMAT [Concomitant]
     Active Substance: TOPIRAMATE
     Indication: MIGRAINE
     Dosage: UNK
     Route: 048
     Dates: start: 201911
  9. LEVOFLOXACINO [LEVOFLOXACIN] [Concomitant]
     Active Substance: LEVOFLOXACIN
     Indication: SINUSITIS
     Dosage: UNK
     Route: 048
     Dates: start: 201912
  10. CITONEURIN [CYANOCOBALAMIN;PYRIDOXINE HYDROCHLORIDE;THIAMINE HYDROCHLO [Concomitant]
     Indication: NEURITIS
     Dosage: UNK
     Route: 048
     Dates: start: 201909
  11. CERTOLIZUMAB PEGOL ASP [Suspect]
     Active Substance: CERTOLIZUMAB PEGOL
     Indication: ANKYLOSING SPONDYLITIS
     Dosage: 400 MILLIGRAM, EV 30 DAYS
     Route: 058
     Dates: start: 201901
  12. CYMBALTA [Concomitant]
     Active Substance: DULOXETINE HYDROCHLORIDE
     Indication: FIBROMYALGIA
     Dosage: 60 MILLIGRAM, 2X/DAY (BID)
     Route: 048
     Dates: start: 2009
  13. TOPIRAMAT [Concomitant]
     Active Substance: TOPIRAMATE
     Indication: AUTONOMIC NERVOUS SYSTEM IMBALANCE
  14. CARBOLITIUM [Concomitant]
     Active Substance: LITHIUM CARBONATE
     Indication: DEPRESSION
     Dosage: 300 MILLIGRAM, ONCE DAILY (QD)
     Route: 048
  15. PREGABALINA [Concomitant]
     Active Substance: PREGABALIN
     Indication: DEPRESSION
     Dosage: UNK, ONCE DAILY (QD)
     Route: 048

REACTIONS (13)
  - Autonomic nervous system imbalance [Recovered/Resolved]
  - Cough [Not Recovered/Not Resolved]
  - Tracheobronchitis [Not Recovered/Not Resolved]
  - Enterocele [Not Recovered/Not Resolved]
  - Abdominal discomfort [Unknown]
  - Osteopenia [Unknown]
  - Urinary tract infection [Not Recovered/Not Resolved]
  - Rheumatoid arthritis [Unknown]
  - Sinusitis [Not Recovered/Not Resolved]
  - Infection [Unknown]
  - Pharyngitis [Not Recovered/Not Resolved]
  - Neuritis [Unknown]
  - Gastrooesophageal reflux disease [Not Recovered/Not Resolved]

NARRATIVE: CASE EVENT DATE: 201912
